FAERS Safety Report 9283635 (Version 1)
Quarter: 2013Q2

REPORT INFORMATION
  Report Type: Spontaneous
  Country: US (occurrence: None)
  Receive Date: 20130508
  Receipt Date: 20130508
  Transmission Date: 20140414
  Serious: Yes (Death)
  Sender: FDA-Public Use
  Company Number: ENTC2013-0167

PATIENT
  Age: 52 Year
  Sex: Male
  Weight: 95 kg

DRUGS (1)
  1. STALEVO (LEVODOPA, CARBIDOPA, ENTACAPONE) [Suspect]
     Indication: PARKINSON^S DISEASE
     Dosage: 150/37.55/200 MG (1 DOSAGE FORM, 4 IN 1)
     Dates: start: 201007

REACTIONS (3)
  - Completed suicide [None]
  - Drug interaction [None]
  - Stress [None]
